FAERS Safety Report 9778606 (Version 3)
Quarter: 2014Q4

REPORT INFORMATION
  Report Type: Spontaneous
  Country: US (occurrence: None)
  Receive Date: 20131219
  Receipt Date: 20141117
  Transmission Date: 20150529
  Serious: Yes (Hospitalization)
  Sender: FDA-Public Use
  Company Number: 2013-US-004277

PATIENT
  Age: 35 Year
  Sex: Female
  Weight: 69.8 kg

DRUGS (8)
  1. AZURETTE [Concomitant]
     Active Substance: DESOGESTREL\ETHINYL ESTRADIOL
  2. LOESTRIN FE (ETHINYLESTRADIOL, FERROUS FUMARATE, NORETHISTERONE ACETATE) [Concomitant]
  3. FELDENE (PIROXICAM) [Concomitant]
  4. XYREM [Suspect]
     Active Substance: SODIUM OXYBATE
     Indication: NARCOLEPSY
     Route: 048
     Dates: start: 201209, end: 20131202
  5. TRILEPTAL [Concomitant]
     Active Substance: OXCARBAZEPINE
  6. TRAMADOL (TRAMADOL HYDROCHLORIDE) [Concomitant]
     Active Substance: TRAMADOL HYDROCHLORIDE
  7. ETODOLAC. [Concomitant]
     Active Substance: ETODOLAC
  8. XYREM [Suspect]
     Active Substance: SODIUM OXYBATE
     Indication: CATAPLEXY
     Route: 048
     Dates: start: 201209, end: 20131202

REACTIONS (6)
  - Road traffic accident [None]
  - Pain [None]
  - Arthralgia [None]
  - Rib fracture [None]
  - Craniocerebral injury [None]
  - Pneumothorax [None]

NARRATIVE: CASE EVENT DATE: 20131203
